FAERS Safety Report 9376323 (Version 1)
Quarter: 2013Q3

REPORT INFORMATION
  Report Type: Report from Study
  Country: AR (occurrence: AR)
  Receive Date: 20130701
  Receipt Date: 20130701
  Transmission Date: 20140515
  Serious: Yes (Death)
  Sender: FDA-Public Use
  Company Number: AR-ROCHE-1243193

PATIENT
  Sex: Male
  Weight: 74 kg

DRUGS (5)
  1. MABTHERA [Suspect]
     Indication: B-CELL LYMPHOMA
     Dosage: RECEIVED 1 CYCLE; DATE OF LAST DOSE: 12/AUG/2012
     Route: 065
     Dates: start: 20120711
  2. CYCLOPHOSPHAMIDE [Concomitant]
     Indication: B-CELL LYMPHOMA
     Dosage: DATE OF LAST DOSE: 12/AUG/2012
     Route: 065
  3. VINCRISTINE [Concomitant]
     Indication: B-CELL LYMPHOMA
     Dosage: RECEIVED 1 CYCLE; DATE OF LAST DOSE: 12/AUG/2012
     Route: 065
  4. DOXORUBICIN [Concomitant]
     Indication: B-CELL LYMPHOMA
     Dosage: RECEIVED 1 CYCLE; DATE OF LAST DOSE: 12/AUG/2012
     Route: 065
  5. DEXAMETHASONE [Concomitant]
     Indication: B-CELL LYMPHOMA
     Dosage: RECEIVED 1 CYCLE; DATE OF LAST DOSE: 12/AUG/2012
     Route: 065

REACTIONS (1)
  - Death [Fatal]
